FAERS Safety Report 6403206-5 (Version None)
Quarter: 2009Q4

REPORT INFORMATION
  Report Type: 
  Country: None (occurrence: None)
  Receive Date: 20091015
  Receipt Date: 20091015
  Transmission Date: 20100525
  Serious: Yes (Life-Threatening, Hospitalization)
  Sender: FDA-Public Use
  Company Number: None

PATIENT
  Sex: Female
  Weight: 65.7716 kg

DRUGS (4)
  1. NIACIN TAB [Suspect]
     Indication: HYPERCHOLESTEROLAEMIA
     Dosage: 500MG TID PO ONE MONTH AGO DID FROM BID TO TID NIGHT JUST PRIOR TO EVENT, TOOK TWO TABS
     Route: 048
  2. GLUCOSAMINE SULFATE [Concomitant]
  3. MULTI-VITAMINS [Concomitant]
  4. CALCIUM [Concomitant]

REACTIONS (6)
  - ATRIAL FIBRILLATION [None]
  - DIZZINESS [None]
  - HYPOTENSION [None]
  - INCORRECT DOSE ADMINISTERED [None]
  - PALPITATIONS [None]
  - SYNCOPE [None]
